FAERS Safety Report 7113345-1 (Version None)
Quarter: 2010Q4

REPORT INFORMATION
  Report Type: 
  Country: None (occurrence: None)
  Receive Date: 20101119
  Receipt Date: 20101110
  Transmission Date: 20110411
  Serious: Yes (Hospitalization)
  Sender: FDA-Public Use
  Company Number: US-JNJFOC-20101104059

PATIENT
  Age: 58 Year
  Sex: Male

DRUGS (2)
  1. IMODIUM A-D [Suspect]
     Route: 065
  2. IMODIUM A-D [Suspect]
     Indication: POST GASTRIC SURGERY SYNDROME
     Route: 065

REACTIONS (2)
  - CARDIAC FAILURE CONGESTIVE [None]
  - PNEUMONIA [None]
